FAERS Safety Report 5298860-8 (Version None)
Quarter: 2007Q2

REPORT INFORMATION
  Report Type: 
  Country: None (occurrence: None)
  Receive Date: 20070410
  Receipt Date: 20070326
  Transmission Date: 20071010
  Serious: Yes (Other)
  Sender: FDA-Public Use
  Company Number: CHPA2007US04265

PATIENT
  Sex: Female
  Weight: 68 kg

DRUGS (1)
  1. NICOTINE [Suspect]
     Indication: SMOKING CESSATION THERAPY
     Dosage: 21 MG, QD, TRANSDERMAL
     Route: 062
     Dates: end: 20070326

REACTIONS (3)
  - ANGINA PECTORIS [None]
  - FEELING ABNORMAL [None]
  - PALPITATIONS [None]
